FAERS Safety Report 13380505 (Version 3)
Quarter: 2017Q2

REPORT INFORMATION
  Report Type: Report from Study
  Country: AT (occurrence: AT)
  Receive Date: 20170329
  Receipt Date: 20170411
  Transmission Date: 20170830
  Serious: Yes (Hospitalization)
  Sender: FDA-Public Use
  Company Number: AT-ROCHE-1912781

PATIENT
  Age: 74 Year
  Sex: Male
  Weight: 64.4 kg

DRUGS (13)
  1. ZOFRAN [Concomitant]
     Active Substance: ONDANSETRON HYDROCHLORIDE
     Indication: NAUSEA
     Route: 065
     Dates: start: 201702
  2. ATEZOLIZUMAB [Suspect]
     Active Substance: ATEZOLIZUMAB
     Indication: NON-SMALL CELL LUNG CANCER STAGE IV
     Dosage: MOST RECENT DOSE OF ATEZOLIZUMAB PRIOR TO THE ONSET OF GASTROENTERITIS WAS ADMINISTERED ON 21/MAR/20
     Route: 042
     Dates: start: 20170321
  3. CITALOPRAM [Concomitant]
     Active Substance: CITALOPRAM HYDROBROMIDE
     Indication: DEPRESSION
  4. PASPERTIN (AUSTRIA) [Concomitant]
     Indication: NAUSEA
     Route: 065
     Dates: start: 201702
  5. CALCIUM GLYCEROPHOSPHATE\CELLULOSE\POLYETHYLENE GLYCOL\SACCHARIN SODIUM\SODIUM HYDROXIDE\SODIUM LAURYL SULFATE\SODIUM MAGNESIUM SILICATE\SODIUM MONOFLUOROPHOSPHATE\SORBITOL\WATER [Concomitant]
     Active Substance: CALCIUM GLYCEROPHOSPHATE\POLYETHYLENE GLYCOLS\POWDERED CELLULOSE\SACCHARIN SODIUM DIHYDRATE\SODIUM HYDROXIDE\SODIUM LAURYL SULFATE\SODIUM MAGNESIUM SILICATE\SODIUM MONOFLUOROPHOSPHATE\SORBITOL\WATER
     Indication: CONSTIPATION
     Route: 065
     Dates: start: 201703
  6. PARACETAMOL [Concomitant]
     Active Substance: ACETAMINOPHEN
     Indication: PYREXIA
     Route: 065
     Dates: start: 20170326, end: 20170330
  7. OLEOVIT D3 [Concomitant]
     Active Substance: CHOLECALCIFEROL
     Indication: VITAMIN D DEFICIENCY
  8. VENDAL [Concomitant]
     Indication: MUSCULOSKELETAL PAIN
     Route: 065
     Dates: start: 20170317
  9. NAB-PACLITAXEL [Suspect]
     Active Substance: PACLITAXEL
     Indication: NON-SMALL CELL LUNG CANCER STAGE IV
     Dosage: MOST RECENT DOSE OF PACLITAXEL ALBUMIN PRIOR TO THE ONSET OF THE GASTROENTERITIS WAS 178 MG ON 21/MA
     Route: 042
     Dates: start: 20170321
  10. GRANISETRON [Concomitant]
     Active Substance: GRANISETRON
     Route: 065
     Dates: start: 20170321
  11. MEXALEN [Concomitant]
     Active Substance: ACETAMINOPHEN
     Indication: PAIN
  12. CARBOPLATIN. [Suspect]
     Active Substance: CARBOPLATIN
     Indication: NON-SMALL CELL LUNG CANCER STAGE IV
     Dosage: TO ACHIEVE AN INITIAL TARGET AREA UNDER THE CONCENTRATION-TIME CURVE (AUC) OF 6 MG/ML/MIN (PER PROTO
     Route: 042
     Dates: start: 20170321
  13. MORAPID [Concomitant]
     Indication: PAIN

REACTIONS (1)
  - Gastroenteritis [Not Recovered/Not Resolved]

NARRATIVE: CASE EVENT DATE: 20170325
